FAERS Safety Report 4436916-X (Version None)
Quarter: 2004Q3

REPORT INFORMATION
  Report Type: 
  Country: None (occurrence: None)
  Receive Date: 20040726
  Receipt Date: 20040318
  Transmission Date: 20050211
  Serious: No
  Sender: FDA-Public Use
  Company Number: USA040361166

PATIENT
  Age: 83 Year
  Sex: Female
  Weight: 58 kg

DRUGS (4)
  1. FORTEO [Suspect]
     Indication: OSTEOPOROSIS
     Dosage: 20 UG/1 DAY
     Dates: start: 20030218
  2. PRAVACHOL [Concomitant]
  3. ATENOLOL [Concomitant]
  4. SYNTHROID [Concomitant]

REACTIONS (1)
  - BONE DENSITY DECREASED [None]
